FAERS Safety Report 17500237 (Version 3)
Quarter: 2022Q1

REPORT INFORMATION
  Report Type: Spontaneous
  Country: DE (occurrence: DE)
  Receive Date: 20200305
  Receipt Date: 20220119
  Transmission Date: 20220424
  Serious: Yes (Death, Hospitalization)
  Sender: FDA-Public Use
  Company Number: DE-CELLTRION INC.-2020DE020149

PATIENT

DRUGS (9)
  1. RITUXIMAB [Suspect]
     Active Substance: RITUXIMAB
     Indication: Post transplant lymphoproliferative disorder
     Dosage: 375 MG/M2 TOTAL BODY SURFACE AREA (TBSA) ON DAY 1
     Route: 065
  2. RITUXIMAB [Suspect]
     Active Substance: RITUXIMAB
     Dosage: 375 MG/M2 TOTAL BODY SURFACE AREA (TBSA) ON DAY 4
     Route: 065
  3. RITUXIMAB [Suspect]
     Active Substance: RITUXIMAB
     Dosage: 375 MG/M2, TOTAL BODY SURFACE AREA (TBSA) ON DAY 1 AND 4
     Route: 065
  4. METHYLPREDNISOLONE [Suspect]
     Active Substance: METHYLPREDNISOLONE
     Indication: Post transplant lymphoproliferative disorder
     Dosage: 2 MG/KG BIWEEKLY
     Route: 065
  5. VINCRISTINE [Suspect]
     Active Substance: VINCRISTINE
     Indication: Post transplant lymphoproliferative disorder
     Dosage: 1.4 MG/M2 TOTAL BODY SURFACE AREA (TBSA) ON DAY 4
     Route: 065
  6. DARATUMUMAB [Suspect]
     Active Substance: DARATUMUMAB
     Indication: Post transplant lymphoproliferative disorder
     Dosage: 8 MG/KG BIWEEKLY ON DAY 6
  7. DARATUMUMAB [Suspect]
     Active Substance: DARATUMUMAB
     Dosage: 8 MG/KG BIWEEKLY ON DAY 7
  8. DARATUMUMAB [Suspect]
     Active Substance: DARATUMUMAB
     Dosage: 8 MG/KG, EVERY 2 WEEKS (ADMINISTRATED ON DAY 6 AND 7, ADDITIONAL INFO: INFUSION; OFF LABEL USE)
  9. CYCLOPHOSPHAMIDE [Concomitant]
     Active Substance: CYCLOPHOSPHAMIDE
     Indication: Post transplant lymphoproliferative disorder
     Dosage: 300 MG/M2, TOTAL BODY SURFACE AREA (TBSA)
     Route: 065

REACTIONS (4)
  - Disease progression [Fatal]
  - Post transplant lymphoproliferative disorder [Fatal]
  - Drug ineffective [Unknown]
  - Off label use [Unknown]
